FAERS Safety Report 17934229 (Version 2)
Quarter: 2020Q3

REPORT INFORMATION
  Report Type: Report from Study
  Country: US (occurrence: US)
  Receive Date: 20200624
  Receipt Date: 20200806
  Transmission Date: 20201103
  Serious: No
  Sender: FDA-Public Use
  Company Number: US-009507513-2006USA003170

PATIENT

DRUGS (1)
  1. JANUMET [Suspect]
     Active Substance: METFORMIN HYDROCHLORIDE\SITAGLIPTIN PHOSPHATE
     Dosage: ONE TABLET TWICE A DAY
     Route: 048
     Dates: start: 2016

REACTIONS (3)
  - Prescription drug used without a prescription [Unknown]
  - No adverse event [Unknown]
  - Product dose omission issue [Unknown]
